FAERS Safety Report 24917040 (Version 3)
Quarter: 2025Q2

REPORT INFORMATION
  Report Type: Spontaneous
  Country: DE (occurrence: DE)
  Receive Date: 20250203
  Receipt Date: 20250502
  Transmission Date: 20250716
  Serious: Yes (Life-Threatening, Hospitalization, Other)
  Sender: BAUSCH AND LOMB
  Company Number: DE-TORRENT-00027933

PATIENT
  Age: 30 Year
  Sex: Male
  Weight: 70 kg

DRUGS (1)
  1. VENLAFAXINE [Suspect]
     Active Substance: VENLAFAXINE HYDROCHLORIDE
     Indication: Depression
     Route: 065
     Dates: start: 201306, end: 20241207

REACTIONS (49)
  - General physical health deterioration [Recovered/Resolved]
  - Seizure [Recovered/Resolved]
  - Gastric ulcer [Recovered/Resolved]
  - Drug withdrawal syndrome [Recovered/Resolved]
  - Ocular hypertension [Unknown]
  - Stress [Not Recovered/Not Resolved]
  - Lung disorder [Recovered/Resolved]
  - Mucosal disorder [Not Recovered/Not Resolved]
  - Metabolic disorder [Recovered/Resolved]
  - Endocrine disorder [Recovered/Resolved]
  - Amblyopia [Recovered/Resolved]
  - Obstructive airways disorder [Recovered/Resolved]
  - Disinhibition [Recovered/Resolved]
  - Rhinorrhoea [Recovered/Resolved]
  - Loss of libido [Recovered/Resolved]
  - Gait disturbance [Recovered/Resolved]
  - Depression [Recovered/Resolved]
  - Anxiety disorder [Recovered/Resolved]
  - Confusional state [Recovered/Resolved]
  - Asthenia [Recovered/Resolved]
  - Conjunctivitis [Recovered/Resolved]
  - Dry mouth [Recovered/Resolved]
  - Tremor [Recovered/Resolved]
  - Upper-airway cough syndrome [Unknown]
  - Restlessness [Unknown]
  - Disorientation [Unknown]
  - Gastrointestinal disorder [Unknown]
  - Decreased appetite [Unknown]
  - Temperature regulation disorder [Unknown]
  - Influenza like illness [Unknown]
  - Nausea [Unknown]
  - Disturbance in attention [Unknown]
  - Dizziness [Unknown]
  - Visual impairment [Unknown]
  - Depression [Unknown]
  - Sleep disorder [Unknown]
  - Muscle tension dysphonia [Unknown]
  - Headache [Unknown]
  - Migraine [Unknown]
  - Dissociation [Unknown]
  - Chest pain [Unknown]
  - Palpitations [Unknown]
  - Abdominal distension [Unknown]
  - Malaise [Unknown]
  - Electric shock sensation [Unknown]
  - Accommodation disorder [Unknown]
  - Illusion [Unknown]
  - Adverse drug reaction [Recovered/Resolved]
  - Sick leave [Unknown]

NARRATIVE: CASE EVENT DATE: 20240601
